FAERS Safety Report 18615707 (Version 3)
Quarter: 2021Q2

REPORT INFORMATION
  Report Type: Spontaneous
  Country: US (occurrence: US)
  Receive Date: 20201215
  Receipt Date: 20210615
  Transmission Date: 20210717
  Serious: No
  Sender: FDA-Public Use
  Company Number: US-GLOBAL BLOOD THERAPEUTICS INC-US-GBT-20-03042

PATIENT
  Sex: Male

DRUGS (4)
  1. OXBRYTA [Suspect]
     Active Substance: VOXELOTOR
     Dates: start: 20201201, end: 20201210
  2. OXBRYTA [Suspect]
     Active Substance: VOXELOTOR
     Dates: start: 20201210, end: 20201220
  3. OXBRYTA [Suspect]
     Active Substance: VOXELOTOR
     Indication: PRODUCT USED FOR UNKNOWN INDICATION
     Dates: start: 20200828, end: 20201201
  4. OXBRYTA [Suspect]
     Active Substance: VOXELOTOR
     Dates: start: 20201224

REACTIONS (8)
  - Blood bilirubin increased [Not Recovered/Not Resolved]
  - Nausea [Recovered/Resolved]
  - Glomerular filtration rate decreased [Not Recovered/Not Resolved]
  - Blood urea increased [Not Recovered/Not Resolved]
  - Blood bilirubin unconjugated increased [Not Recovered/Not Resolved]
  - Blood creatinine increased [Not Recovered/Not Resolved]
  - Vomiting [Recovered/Resolved]
  - Diarrhoea [Recovered/Resolved]

NARRATIVE: CASE EVENT DATE: 2020
